FAERS Safety Report 21086233 (Version 1)
Quarter: 2022Q3

REPORT INFORMATION
  Report Type: Spontaneous
  Country: US (occurrence: US)
  Receive Date: 20220715
  Receipt Date: 20220715
  Transmission Date: 20221027
  Serious: Yes (Hospitalization, Other)
  Sender: FDA-Public Use
  Company Number: US-ABBVIE-22K-163-4467089-00

PATIENT
  Age: 74 Year
  Sex: Male
  Weight: 79.450 kg

DRUGS (5)
  1. RINVOQ [Suspect]
     Active Substance: UPADACITINIB
     Indication: Rheumatoid arthritis
     Route: 048
     Dates: start: 202008
  2. JANSSEN COVID-19 VACCINE [Concomitant]
     Active Substance: AD26.COV2.S
     Indication: COVID-19 immunisation
     Dosage: 1ST DOSE
     Route: 030
     Dates: start: 20210311, end: 20210311
  3. ATORVASTATIN [Concomitant]
     Active Substance: ATORVASTATIN
     Indication: Blood cholesterol
  4. HYDROXYUREA [Concomitant]
     Active Substance: HYDROXYUREA
     Indication: Platelet count increased
  5. PFIZER-BIONTECH COVID-19 VACCINE [Concomitant]
     Active Substance: TOZINAMERAN
     Indication: COVID-19 immunisation
     Dosage: 2ND DOSE
     Route: 030
     Dates: start: 20211228, end: 20211228

REACTIONS (1)
  - Subdural haematoma [Recovering/Resolving]

NARRATIVE: CASE EVENT DATE: 20220628
